FAERS Safety Report 9994769 (Version 1)
Quarter: 2014Q1

REPORT INFORMATION
  Report Type: Spontaneous
  Country: US (occurrence: None)
  Receive Date: 20140307
  Receipt Date: 20140307
  Transmission Date: 20141002
  Serious: Yes (Other)
  Sender: FDA-Public Use
  Company Number: None

PATIENT
  Age: 57 Year
  Sex: Female
  Weight: 160.12 kg

DRUGS (22)
  1. FLUOXETINE [Suspect]
     Indication: DEPRESSION
     Dosage: 20 MG 1 TABLET THREE TIMES DAILY
     Route: 048
  2. FLUOXETINE [Suspect]
     Indication: ANXIETY
     Dosage: 20 MG 1 TABLET THREE TIMES DAILY
     Route: 048
  3. VENTOLIN HFA [Concomitant]
  4. DUONEB [Concomitant]
  5. AMITRIPTYLINE [Concomitant]
  6. QVAR [Concomitant]
  7. BUMETANIDE [Concomitant]
  8. CELECOXIB [Concomitant]
  9. CYCLOBENZAPRINE [Concomitant]
  10. EPIP [Concomitant]
  11. PROZAC [Concomitant]
  12. LANSOPRAZOLE [Concomitant]
  13. LEVOTHYROXINE [Concomitant]
  14. LISINOPRIL [Concomitant]
  15. PIOGLITAZONE [Concomitant]
  16. POTASSIUM CHLORIDE [Concomitant]
  17. ASPIRIN [Concomitant]
  18. MEQ [Concomitant]
  19. PROMETHAZINE [Concomitant]
  20. SIMVASTATIN [Concomitant]
  21. TRAMADOL [Concomitant]
  22. ZALEPLON [Concomitant]

REACTIONS (2)
  - Treatment failure [None]
  - Product substitution issue [None]
